FAERS Safety Report 15291294 (Version 1)
Quarter: 2018Q3

REPORT INFORMATION
  Report Type: Spontaneous
  Country: GB (occurrence: GB)
  Receive Date: 20180817
  Receipt Date: 20180817
  Transmission Date: 20181010
  Serious: Yes (Other)
  Sender: FDA-Public Use
  Company Number: GB-TEVA-2018-GB-943037

PATIENT
  Age: 54 Year
  Sex: Female
  Weight: 69.39 kg

DRUGS (1)
  1. SERTRALINE [Suspect]
     Active Substance: SERTRALINE HYDROCHLORIDE
     Indication: ANXIETY
     Route: 048
     Dates: start: 20180618, end: 20180711

REACTIONS (12)
  - Panic reaction [Not Recovered/Not Resolved]
  - Palpitations [Unknown]
  - Hyperhidrosis [Not Recovered/Not Resolved]
  - Hyperventilation [Not Recovered/Not Resolved]
  - Nervousness [Unknown]
  - Agitation [Not Recovered/Not Resolved]
  - Confusional state [Not Recovered/Not Resolved]
  - Paraesthesia [Not Recovered/Not Resolved]
  - Tremor [Not Recovered/Not Resolved]
  - Visual impairment [Unknown]
  - Dizziness [Not Recovered/Not Resolved]
  - Insomnia [Unknown]

NARRATIVE: CASE EVENT DATE: 201806
